FAERS Safety Report 18037676 (Version 1)
Quarter: 2020Q3

REPORT INFORMATION
  Report Type: Spontaneous
  Country: US (occurrence: US)
  Receive Date: 20200717
  Receipt Date: 20200717
  Transmission Date: 20201103
  Serious: No
  Sender: FDA-Public Use
  Company Number: US-SA-2020SA185343

PATIENT

DRUGS (1)
  1. DUPIXENT [Suspect]
     Active Substance: DUPILUMAB
     Dosage: 300 MG, OTHER
     Route: 058
     Dates: start: 201908

REACTIONS (4)
  - Conjunctivitis [Unknown]
  - Localised infection [Unknown]
  - Tinea pedis [Unknown]
  - Tinea infection [Unknown]

NARRATIVE: CASE EVENT DATE: 20200624
